FAERS Safety Report 4492591-X (Version None)
Quarter: 2004Q4

REPORT INFORMATION
  Report Type: 
  Country: None (occurrence: None)
  Receive Date: 20041104
  Receipt Date: 20041027
  Transmission Date: 20050328
  Serious: Yes (Other)
  Sender: FDA-Public Use
  Company Number: DE-ABBOTT-04P-062-0279446-00

PATIENT
  Sex: Male
  Weight: 70 kg

DRUGS (2)
  1. VERAPAMIL [Suspect]
     Indication: SUICIDE ATTEMPT
     Route: 048
     Dates: start: 20041027, end: 20041027
  2. ZOPICLONE [Suspect]
     Indication: SUICIDE ATTEMPT
     Route: 048
     Dates: start: 20041027, end: 20041027

REACTIONS (3)
  - OVERDOSE [None]
  - SOMNOLENCE [None]
  - SUICIDE ATTEMPT [None]
